FAERS Safety Report 8878841 (Version 1)
Quarter: 2012Q4

REPORT INFORMATION
  Report Type: 
  Country: US (occurrence: US)
  Receive Date: 20121026
  Receipt Date: 20121026
  Transmission Date: 20130627
  Serious: No
  Sender: FDA-Public Use
  Company Number: US-BAYER-2012-112219

PATIENT
  Age: 46 Year
  Sex: Female

DRUGS (2)
  1. BETASERON [Suspect]
     Indication: MS
     Dosage: 0.3 mg, QOD
     Route: 058
     Dates: start: 201109
  2. ANTIHYPERTENSIVES [Suspect]

REACTIONS (4)
  - Nausea [None]
  - Lethargy [None]
  - Memory impairment [None]
  - No adverse event [None]
